FAERS Safety Report 7783971-5 (Version None)
Quarter: 2011Q3

REPORT INFORMATION
  Report Type: 
  Country: None (occurrence: None)
  Receive Date: 20110928
  Receipt Date: 20110921
  Transmission Date: 20111222
  Serious: Yes (Other)
  Sender: FDA-Public Use
  Company Number: AU-ASTRAZENECA-2011SE57063

PATIENT
  Age: 83 Year
  Sex: Female

DRUGS (3)
  1. FENTANYL [Suspect]
  2. MORPHINE SULFATE [Suspect]
  3. PROPOFOL [Suspect]

REACTIONS (1)
  - ANAESTHETIC COMPLICATION PULMONARY [None]
